FAERS Safety Report 7232886-X (Version None)
Quarter: 2011Q1

REPORT INFORMATION
  Report Type: 
  Country: None (occurrence: None)
  Receive Date: 20110110
  Receipt Date: 20110105
  Transmission Date: 20110831
  Serious: Yes (Death, Hospitalization, Other)
  Sender: FDA-Public Use
  Company Number: CL-282-2011

PATIENT
  Age: 25 Year
  Sex: Male

DRUGS (17)
  1. FLUCONAZOLE [Suspect]
     Indication: ORAL CANDIDIASIS
  2. DARUNAVIR [Suspect]
     Indication: HIV INFECTION
  3. AMIKACIN [Concomitant]
  4. MOXIFLOXACIN [Concomitant]
  5. COFAZAMINE [Concomitant]
  6. VALGANCICLOVIR HCL [Concomitant]
  7. EFAVIRENZ [Concomitant]
  8. LINEZOLID [Concomitant]
  9. ONDANSETRON [Suspect]
     Indication: PRODUCT USED FOR UNKNOWN INDICATION
  10. PROTHIONAMIDE [Concomitant]
  11. MOXIFLOXACIN [Suspect]
     Indication: TUBERCULOSIS
  12. RITONAVIR [Suspect]
     Indication: HIV INFECTION
  13. ETHAMBUTOL HYDROCHLORIDE [Concomitant]
  14. PYRAZINAMIDE [Concomitant]
  15. HEPARIN LOW MOLECULAR WEIGHT [Concomitant]
  16. CYCLOSERINE [Concomitant]
  17. TRUVADA [Concomitant]

REACTIONS (1)
  - ARRHYTHMIA [None]
